FAERS Safety Report 5372492-5 (Version None)
Quarter: 2007Q2

REPORT INFORMATION
  Report Type: 
  Country: None (occurrence: None)
  Receive Date: 20070620
  Receipt Date: 20070504
  Transmission Date: 20071010
  Serious: No
  Sender: FDA-Public Use
  Company Number: 2007RL000207

PATIENT
  Age: 62 Year
  Sex: Male
  Weight: 95.709 kg

DRUGS (6)
  1. OMACOR [Suspect]
     Indication: DRUG USE FOR UNKNOWN INDICATION
     Dosage: 1 GM; PO
     Route: 048
     Dates: start: 20070403, end: 20070404
  2. CELEBREX [Concomitant]
  3. VYTORIN [Concomitant]
  4. FOLIC ACID [Concomitant]
  5. ASPIRIN [Concomitant]
  6. ARAVA [Concomitant]

REACTIONS (2)
  - DIZZINESS [None]
  - HYPERTENSION [None]
